FAERS Safety Report 6191360-2 (Version None)
Quarter: 2009Q2

REPORT INFORMATION
  Report Type: 
  Country: None (occurrence: None)
  Receive Date: 20090515
  Receipt Date: 20080410
  Transmission Date: 20091009
  Serious: Yes (Hospitalization)
  Sender: FDA-Public Use
  Company Number: US-ASTRAZENECA-2007UW25101

PATIENT
  Age: 11706 Day
  Sex: Female
  Weight: 93 kg

DRUGS (21)
  1. SEROQUEL [Suspect]
     Indication: DEPRESSION
     Dosage: 25MG-400MG
     Route: 048
     Dates: start: 20041015
  2. SEROQUEL [Suspect]
     Indication: INSOMNIA
     Dosage: 25MG-400MG
     Route: 048
     Dates: start: 20041015
  3. SEROQUEL [Suspect]
     Route: 048
     Dates: start: 20040101
  4. SEROQUEL [Suspect]
     Route: 048
     Dates: start: 20040101
  5. TRAZODONE HCL [Suspect]
     Route: 065
  6. LEXAPRO [Concomitant]
     Indication: DEPRESSION
     Route: 065
  7. LEXAPRO [Concomitant]
     Indication: ANXIETY
     Route: 065
  8. DEPAKOTE [Concomitant]
     Dosage: 750 MG-1250 MG
     Route: 065
  9. VISTARIL [Concomitant]
     Dosage: 12.5 MG - 50 MG
     Route: 065
  10. TOPAMAX [Concomitant]
     Route: 065
  11. ACTOS [Concomitant]
     Route: 065
  12. XANAX [Concomitant]
     Route: 065
  13. VALIUM [Concomitant]
     Dosage: 0.5 MG - 10 MG
     Route: 065
  14. RISPERDAL [Concomitant]
     Route: 065
  15. HYDROXYZINE PAM [Concomitant]
     Route: 065
  16. IBUPROFEN [Concomitant]
     Dosage: 600MG - 800MG, EVERY 6 HOURS
     Route: 065
  17. ABILIFY [Concomitant]
     Route: 065
  18. AVANDIA [Concomitant]
     Route: 065
  19. ALBUTEROL [Concomitant]
     Indication: BRONCHITIS
     Dosage: TWO PUFFS TWICE A DAY
     Route: 065
  20. ALLEGRA D 24 HOUR [Concomitant]
     Indication: RHINITIS ALLERGIC
     Route: 065
  21. LAMICTAL [Concomitant]
     Route: 065

REACTIONS (31)
  - ABDOMINAL PAIN LOWER [None]
  - ARTHRALGIA [None]
  - BIPOLAR DISORDER [None]
  - BLOOD PRESSURE INCREASED [None]
  - BREAST ABSCESS [None]
  - BRONCHITIS [None]
  - CONSTIPATION [None]
  - DEPRESSION [None]
  - DIABETES MELLITUS [None]
  - DIZZINESS [None]
  - EYELID OEDEMA [None]
  - FATIGUE [None]
  - GASTRITIS [None]
  - GASTROOESOPHAGEAL REFLUX DISEASE [None]
  - GENERALISED ANXIETY DISORDER [None]
  - HYPERLIPIDAEMIA [None]
  - NAUSEA [None]
  - OBESITY [None]
  - PANIC DISORDER WITH AGORAPHOBIA [None]
  - POLYURIA [None]
  - RHINITIS ALLERGIC [None]
  - SINUSITIS [None]
  - SNEEZING [None]
  - SUBCUTANEOUS ABSCESS [None]
  - SUICIDAL IDEATION [None]
  - TOOTH ABSCESS [None]
  - URINARY TRACT INFECTION [None]
  - VIRAL UPPER RESPIRATORY TRACT INFECTION [None]
  - VISION BLURRED [None]
  - VOMITING [None]
  - WEIGHT DECREASED [None]
